FAERS Safety Report 5169938-4 (Version None)
Quarter: 2006Q4

REPORT INFORMATION
  Report Type: 
  Country: None (occurrence: None)
  Receive Date: 20061212
  Receipt Date: 20061204
  Transmission Date: 20070319
  Serious: Yes (Hospitalization)
  Sender: FDA-Public Use
  Company Number: FR-ROCHE-473753

PATIENT
  Age: 48 Year
  Sex: Male

DRUGS (7)
  1. ROVALCYTE [Suspect]
     Indication: DRUG USE FOR UNKNOWN INDICATION
     Route: 065
     Dates: start: 20050819
  2. MYCOPHENOLATE MOFETIL [Suspect]
     Route: 048
     Dates: start: 20050819
  3. TACROLIMUS [Suspect]
     Route: 048
     Dates: start: 20050819
  4. RENITEC [Concomitant]
     Dates: start: 20050916
  5. TARDYFERON [Concomitant]
     Dates: start: 20050913
  6. ATARAX [Concomitant]
     Dates: start: 20050911
  7. THERALENE [Concomitant]
     Dates: start: 20050912

REACTIONS (1)
  - GENERAL PHYSICAL CONDITION ABNORMAL [None]
